FAERS Safety Report 10842405 (Version 1)
Quarter: 2015Q1

REPORT INFORMATION
  Report Type: Spontaneous
  Country: US (occurrence: US)
  Receive Date: 20150220
  Receipt Date: 20150220
  Transmission Date: 20150721
  Serious: No
  Sender: FDA-Public Use
  Company Number: US-PFIZER INC-2015064043

PATIENT
  Sex: Male

DRUGS (1)
  1. VIAGRA [Suspect]
     Active Substance: SILDENAFIL CITRATE
     Indication: ERECTILE DYSFUNCTION
     Dosage: HALF TABLET
     Dates: start: 20150208

REACTIONS (3)
  - Drug effect incomplete [Unknown]
  - Penis disorder [Unknown]
  - Premature ejaculation [Unknown]

NARRATIVE: CASE EVENT DATE: 20150209
